FAERS Safety Report 17088173 (Version 1)
Quarter: 2019Q4

REPORT INFORMATION
  Report Type: Other
  Country: GB (occurrence: GB)
  Receive Date: 20191128
  Receipt Date: 20191128
  Transmission Date: 20200122
  Serious: Yes (Disabling)
  Sender: FDA-Public Use
  Company Number: GB-CELLTRION INC.-2019GB026685

PATIENT

DRUGS (4)
  1. BETAHISTINE [Concomitant]
     Active Substance: BETAHISTINE
     Route: 065
  2. BENDAMUSTINE [Suspect]
     Active Substance: BENDAMUSTINE
     Indication: FOLLICLE CENTRE LYMPHOMA, FOLLICULAR GRADE I, II, III STAGE III
     Route: 065
  3. RITUXIMAB (UNKNOWN) [Suspect]
     Active Substance: RITUXIMAB
     Indication: FOLLICLE CENTRE LYMPHOMA, FOLLICULAR GRADE I, II, III STAGE III
     Dosage: UNK (PHARMACEUTICAL DOSE FORM: 230)
     Route: 042
  4. HYDROXYCARBAMIDE [Concomitant]
     Active Substance: HYDROXYUREA
     Route: 065

REACTIONS (3)
  - Brain injury [Unknown]
  - Progressive multifocal leukoencephalopathy [Unknown]
  - Muscular weakness [Unknown]
